FAERS Safety Report 4349966-9 (Version None)
Quarter: 2004Q2

REPORT INFORMATION
  Report Type: 
  Country: None (occurrence: None)
  Receive Date: 20040428
  Receipt Date: 20040428
  Transmission Date: 20050107
  Serious: Yes (Other)
  Sender: FDA-Public Use
  Company Number: None

PATIENT
  Age: 11 Year
  Sex: Male

DRUGS (1)
  1. ABILIFY [Suspect]
     Indication: DEVELOPMENTAL DELAY
     Dosage: 1/2 QHS

REACTIONS (2)
  - DYSURIA [None]
  - ERECTION INCREASED [None]
